FAERS Safety Report 9260428 (Version 2)
Quarter: 2013Q2

REPORT INFORMATION
  Report Type: Spontaneous
  Country: IL (occurrence: IL)
  Receive Date: 20130429
  Receipt Date: 20130503
  Transmission Date: 20140414
  Serious: Yes (Other)
  Sender: FDA-Public Use
  Company Number: IL-ROCHE-1219327

PATIENT
  Age: 22 Year
  Sex: Male

DRUGS (1)
  1. AVASTIN [Suspect]
     Indication: MALIGNANT OLIGODENDROGLIOMA
     Route: 065
     Dates: start: 20121107

REACTIONS (1)
  - Retinal ischaemia [Not Recovered/Not Resolved]
